FAERS Safety Report 8354458-6 (Version None)
Quarter: 2012Q2

REPORT INFORMATION
  Report Type: 
  Country: None (occurrence: None)
  Receive Date: 20120511
  Receipt Date: 20120502
  Transmission Date: 20120825
  Serious: Yes (Other)
  Sender: FDA-Public Use
  Company Number: US-JNJFOC-20120503673

PATIENT
  Age: 47 Year
  Sex: Female

DRUGS (14)
  1. REMICADE [Suspect]
     Route: 042
     Dates: start: 20100901
  2. MIRALAX [Concomitant]
  3. LEXAPRO [Concomitant]
  4. METFORMIN HCL [Concomitant]
  5. ZOFRAN [Concomitant]
  6. AMBIEN [Concomitant]
  7. CLOBETASOL PROPIONATE [Concomitant]
  8. TEGRETOL [Concomitant]
  9. VICODIN [Concomitant]
  10. SOMA [Concomitant]
  11. OMNARIS [Concomitant]
  12. REMICADE [Suspect]
     Indication: CROHN'S DISEASE
     Route: 042
     Dates: start: 20120316
  13. XANAX [Concomitant]
  14. LEVSIN SL [Concomitant]

REACTIONS (3)
  - PAIN IN JAW [None]
  - ERYTHEMA [None]
  - TRIGEMINAL NEURALGIA [None]
